FAERS Safety Report 13681826 (Version 9)
Quarter: 2021Q3

REPORT INFORMATION
  Report Type: Report from Study
  Country: CN (occurrence: CN)
  Receive Date: 20170623
  Receipt Date: 20210930
  Transmission Date: 20211014
  Serious: Yes (Hospitalization)
  Sender: FDA-Public Use
  Company Number: CN-ROCHE-1954213

PATIENT
  Age: 68 Year
  Sex: Male
  Weight: 82 kg

DRUGS (38)
  1. POLYENE PHOSPHATIDYLCHOLINE [Concomitant]
     Active Substance: PHOSPHOLIPID
     Dates: start: 20200417, end: 20200427
  2. ACETYLCYSTEINE. [Concomitant]
     Active Substance: ACETYLCYSTEINE
     Indication: PRODUCTIVE COUGH
  3. ACARBOSE. [Concomitant]
     Active Substance: ACARBOSE
     Indication: HYPERGLYCAEMIA
     Dates: start: 20171226
  4. METFORMIN HYDROCHLORIDE. [Concomitant]
     Active Substance: METFORMIN HYDROCHLORIDE
     Indication: HYPERGLYCAEMIA
     Dates: start: 20180125
  5. SITAGLIPTIN PHOSPHATE [Concomitant]
     Active Substance: SITAGLIPTIN PHOSPHATE
     Indication: HYPERGLYCAEMIA
     Dates: start: 20210310, end: 20210628
  6. OFLOXACIN. [Concomitant]
     Active Substance: OFLOXACIN
     Indication: CONJUNCTIVITIS
     Dates: start: 20200615, end: 20200703
  7. ROSIGLITAZONE SODIUM [Concomitant]
     Active Substance: ROSIGLITAZONE
     Indication: HYPERGLYCAEMIA
     Dates: start: 20200124, end: 20200222
  8. GLICLAZIDE [Concomitant]
     Active Substance: GLICLAZIDE
     Indication: HYPERGLYCAEMIA
     Dates: start: 20191009, end: 20210917
  9. ATEZOLIZUMAB. [Suspect]
     Active Substance: ATEZOLIZUMAB
     Indication: NON-SMALL CELL LUNG CANCER
     Dosage: 12/OCT/2017, MOST RECENT DOSE OF ATEZOLIZUMAB PRIOR TO SAE ONSET
     Route: 041
     Dates: start: 20160805
  10. FUROSEMIDE. [Concomitant]
     Active Substance: FUROSEMIDE
     Indication: PERICARDIAL EFFUSION
     Dates: start: 20170810, end: 20170903
  11. CEFPROZIL. [Concomitant]
     Active Substance: CEFPROZIL
     Indication: COUGH
     Dates: start: 20190106, end: 20190109
  12. CREATINE PHOSPHATE SODIUM [Concomitant]
     Active Substance: CREATINE
     Dosage: HEART PROTECTION
     Dates: start: 20170622, end: 20170622
  13. ADEMETIONINE 1,4?BUTANEDISULFONATE [Concomitant]
     Active Substance: ADEMETIONINE BUTANEDISULFONATE
     Dates: start: 20200417, end: 20200427
  14. GANCICLOVIR. [Concomitant]
     Active Substance: GANCICLOVIR
     Route: 047
     Dates: start: 20200615, end: 20200703
  15. POLYENE PHOSPHATIDYLCHOLINE [Concomitant]
     Active Substance: PHOSPHOLIPID
     Dosage: LIVER PROTECTION
     Dates: start: 20170621, end: 20170621
  16. FUROSEMIDE. [Concomitant]
     Active Substance: FUROSEMIDE
     Indication: POLYURIA
     Dates: start: 20170718, end: 20170722
  17. METFORMIN HYDROCHLORIDE. [Concomitant]
     Active Substance: METFORMIN HYDROCHLORIDE
     Dates: start: 20180414, end: 20210901
  18. GLIPIZIDE. [Concomitant]
     Active Substance: GLIPIZIDE
     Indication: HYPERGLYCAEMIA
     Dates: start: 20210918
  19. GLUCOSE [Concomitant]
     Active Substance: DEXTROSE
     Dates: start: 20170621, end: 20170621
  20. POTASSIUM CHLORIDE. [Concomitant]
     Active Substance: POTASSIUM CHLORIDE
     Dosage: NUTRITIONAL MYOCARDIUM
     Dates: start: 20170621, end: 20170621
  21. RECOMBINANT HUMAN INSULIN [Concomitant]
     Active Substance: INSULIN HUMAN
     Dosage: NUTRITIONAL MYOCARDIUM
     Dates: start: 20170621, end: 20170621
  22. FRUCTOSE DIPHOSPHATE SODIUM [Concomitant]
     Dosage: HEART PROTECTION
     Dates: start: 20170626, end: 20170703
  23. FRUCTOSE DIPHOSPHATE SODIUM [Concomitant]
     Dosage: HEART PROTECTION
     Dates: start: 20170718, end: 20170725
  24. TRIMETAZIDINE DIHYDROCHLORIDE [Concomitant]
     Active Substance: TRIMETAZIDINE DIHYDROCHLORIDE
     Dosage: HEART PROTECTION
     Dates: start: 20170718, end: 20170725
  25. SPIRONOLACTONE. [Concomitant]
     Active Substance: SPIRONOLACTONE
     Indication: PERICARDIAL EFFUSION
     Dates: start: 20170810, end: 20170903
  26. COMPOUND METHOXYPHENAMINE [Concomitant]
     Indication: COUGH
     Dates: start: 20170120, end: 20170126
  27. ACETYLCYSTEINE. [Concomitant]
     Active Substance: ACETYLCYSTEINE
     Indication: COUGH
     Route: 048
     Dates: start: 20170120, end: 20170126
  28. DIAMICRON MR [Concomitant]
     Active Substance: GLICLAZIDE
     Indication: HYPERGLYCAEMIA
     Dates: start: 20171226
  29. ADEMETIONINE 1,4?BUTANEDISULFONATE [Concomitant]
     Active Substance: ADEMETIONINE BUTANEDISULFONATE
     Dates: start: 20200509, end: 20200614
  30. SPIRONOLACTONE. [Concomitant]
     Active Substance: SPIRONOLACTONE
     Indication: POLYURIA
     Dates: start: 20170718, end: 20170723
  31. CELECOXIB. [Concomitant]
     Active Substance: CELECOXIB
     Indication: ARTHRALGIA
     Route: 048
     Dates: start: 20170208, end: 20170213
  32. POLYENE PHOSPHATIDYLCHOLINE [Concomitant]
     Active Substance: PHOSPHOLIPID
     Dates: start: 20200509, end: 20200922
  33. TRIMETAZIDINE DIHYDROCHLORIDE [Concomitant]
     Active Substance: TRIMETAZIDINE DIHYDROCHLORIDE
     Dosage: HEART PROTECTION
     Dates: start: 20170626, end: 20170703
  34. COMPOUND METHOXYPHENAMINE [Concomitant]
     Indication: PRODUCTIVE COUGH
  35. CELECOXIB. [Concomitant]
     Active Substance: CELECOXIB
     Indication: LIGAMENT SPRAIN
     Dates: start: 20190726, end: 20190804
  36. COMPOUND GLYCYRRHIZAE (UNK INGREDIENTS) [Concomitant]
     Indication: COUGH
     Route: 048
     Dates: start: 20180131, end: 20180206
  37. GLIPIZIDE. [Concomitant]
     Active Substance: GLIPIZIDE
     Dates: start: 20210310, end: 20210628
  38. METFORMIN HYDROCHLORIDE. [Concomitant]
     Active Substance: METFORMIN HYDROCHLORIDE
     Dates: start: 20190902, end: 20200614

REACTIONS (2)
  - Blood creatine phosphokinase increased [Recovered/Resolved]
  - Hypothyroidism [Not Recovered/Not Resolved]

NARRATIVE: CASE EVENT DATE: 20170119
